FAERS Safety Report 6960530-5 (Version None)
Quarter: 2010Q3

REPORT INFORMATION
  Report Type: 
  Country: None (occurrence: None)
  Receive Date: 20100823
  Receipt Date: 20100623
  Transmission Date: 20110219
  Serious: No
  Sender: FDA-Public Use
  Company Number: 014760

PATIENT
  Age: 61 Year
  Sex: Male

DRUGS (1)
  1. CIMZIA [Suspect]
     Indication: RHEUMATOID ARTHRITIS
     Dosage: (DOSE- 200MG (2 DOSES)=400 MG SUBCUTANEOUS0
     Route: 058
     Dates: start: 20100601

REACTIONS (2)
  - INSOMNIA [None]
  - RHEUMATOID ARTHRITIS [None]
